FAERS Safety Report 7634313-7 (Version None)
Quarter: 2011Q3

REPORT INFORMATION
  Report Type: 
  Country: None (occurrence: None)
  Receive Date: 20110725
  Receipt Date: 20110720
  Transmission Date: 20111222
  Serious: Yes (Other)
  Sender: FDA-Public Use
  Company Number: US-PFIZER INC-2011165876

PATIENT
  Age: 51 Year
  Sex: Female

DRUGS (2)
  1. LIPITOR [Suspect]
     Indication: BLOOD CHOLESTEROL INCREASED
     Dosage: UNK
     Route: 048
     Dates: start: 20100401, end: 20101001
  2. ACETYLSALICYLIC ACID [Concomitant]
     Dosage: 162 MG, DAILY

REACTIONS (4)
  - FATIGUE [None]
  - MYALGIA [None]
  - MUSCULAR WEAKNESS [None]
  - TENDON DISORDER [None]
